FAERS Safety Report 22219036 (Version 1)
Quarter: 2023Q2

REPORT INFORMATION
  Report Type: Spontaneous
  Country: JP (occurrence: JP)
  Receive Date: 20230417
  Receipt Date: 20230417
  Transmission Date: 20230722
  Serious: Yes (Hospitalization)
  Sender: FDA-Public Use
  Company Number: JP-GLAXOSMITHKLINE-JP2023GSK052403

PATIENT

DRUGS (12)
  1. SOTROVIMAB [Suspect]
     Active Substance: SOTROVIMAB
     Indication: COVID-19
     Dosage: 500 MG OVER 30 MIN
     Route: 042
  2. COVID-19 VACCINE [Concomitant]
     Indication: Prophylaxis
     Dosage: UNK
  3. COVID-19 VACCINE [Concomitant]
     Indication: Prophylaxis
     Dosage: UNK
  4. 0.9 % SALINE SOLUTION [Concomitant]
     Indication: Diabetic ketoacidosis
     Dosage: UNK
     Route: 042
  5. SODIUM BICARBONATE [Concomitant]
     Active Substance: SODIUM BICARBONATE
     Indication: Diabetic ketoacidosis
     Dosage: UNK
  6. INSULIN ASPART [Concomitant]
     Active Substance: INSULIN ASPART
     Indication: Diabetic ketoacidosis
     Dosage: 90 UNITS/D
     Route: 042
  7. INSULIN ASPART [Concomitant]
     Active Substance: INSULIN ASPART
     Dosage: 93 UNITS/D
     Route: 042
  8. INSULIN ASPART\INSULIN DEGLUDEC [Concomitant]
     Active Substance: INSULIN ASPART\INSULIN DEGLUDEC
     Indication: Diabetic ketoacidosis
     Dosage: 15/17 UNITS/D MULTIPLE INJECTIONS, DAY 3
     Route: 058
  9. INSULIN ASPART\INSULIN DEGLUDEC [Concomitant]
     Active Substance: INSULIN ASPART\INSULIN DEGLUDEC
     Dosage: 15/20 UNITS/D MULTIPLE INJECTIONS, DAY 4
     Route: 058
  10. INSULIN ASPART\INSULIN DEGLUDEC [Concomitant]
     Active Substance: INSULIN ASPART\INSULIN DEGLUDEC
     Dosage: 25/23 UNITS/D MULTIPLE INJECTIONS, DAY 5
     Route: 058
  11. INSULIN ASPART\INSULIN DEGLUDEC [Concomitant]
     Active Substance: INSULIN ASPART\INSULIN DEGLUDEC
     Dosage: 43/26 UNITS/D MULTIPLE INJECTIONS, DAY 6
     Route: 058
  12. INSULIN ASPART\INSULIN DEGLUDEC [Concomitant]
     Active Substance: INSULIN ASPART\INSULIN DEGLUDEC
     Dosage: 49/30 UNITS/D MULTIPLE INJECTIONS, DAY 7
     Route: 058

REACTIONS (1)
  - Hyperglycaemia [Recovered/Resolved]
